FAERS Safety Report 25423493 (Version 1)
Quarter: 2025Q2

REPORT INFORMATION
  Report Type: Report from Study
  Country: ZA (occurrence: ZA)
  Receive Date: 20250611
  Receipt Date: 20250611
  Transmission Date: 20250717
  Serious: Yes (Death)
  Sender: ABBVIE
  Company Number: ZA-ABBVIE-6322508

PATIENT
  Age: 55 Year
  Sex: Female

DRUGS (1)
  1. OZURDEX [Suspect]
     Active Substance: DEXAMETHASONE
     Indication: Retinal vein occlusion
     Route: 050
     Dates: start: 20230919, end: 20241111

REACTIONS (1)
  - Death [Fatal]

NARRATIVE: CASE EVENT DATE: 20250514
